FAERS Safety Report 16720340 (Version 4)
Quarter: 2019Q3

REPORT INFORMATION
  Report Type: Spontaneous
  Country: CA (occurrence: CA)
  Receive Date: 20190820
  Receipt Date: 20190912
  Transmission Date: 20191005
  Serious: Yes (Death, Other)
  Sender: FDA-Public Use
  Company Number: CA-PFIZER INC-2019326083

PATIENT
  Age: 33 Year
  Sex: Female
  Weight: 82.7 kg

DRUGS (19)
  1. CYCLOBENZAPRINE. [Concomitant]
     Active Substance: CYCLOBENZAPRINE
     Dosage: 10 MG, 1X/DAY AT BEDTIME AS NEEDED
     Dates: start: 20181213
  2. LORBRENA [Suspect]
     Active Substance: LORLATINIB
     Indication: NON-SMALL CELL LUNG CANCER
     Dosage: 100 MG, 1X/DAY
     Route: 048
     Dates: start: 20190124, end: 20190810
  3. XGEVA [Concomitant]
     Active Substance: DENOSUMAB
     Dosage: 120 MG, EVERY 4 WEEKS
     Route: 058
     Dates: start: 20181106
  4. LAX A DAY PHARMA [Concomitant]
     Dosage: 34 G, 1X/DAY
     Route: 048
     Dates: start: 20180216
  5. PREGABALIN. [Concomitant]
     Active Substance: PREGABALIN
     Dosage: 75 MG, 1X/DAY AT BEDTIME
     Dates: start: 201906
  6. INNOHEP [Concomitant]
     Active Substance: TINZAPARIN SODIUM
     Dosage: 14000 IU, 1X/DAY
     Route: 058
     Dates: start: 20180114
  7. PROCHLORAZINE [Concomitant]
     Indication: VOMITING
  8. PANTOPRAZOLE SODIUM. [Concomitant]
     Active Substance: PANTOPRAZOLE SODIUM
     Dosage: 40 MG, 1X/ DAY IN THE MORNING 30 MINS BEFORE BREAKFAST
     Dates: start: 20190507
  9. D TABS [Concomitant]
     Active Substance: CHOLECALCIFEROL
     Dosage: 10000 IU, WEEKLY
     Dates: start: 20180906
  10. CALCIUM CARBONATE. [Concomitant]
     Active Substance: CALCIUM CARBONATE
     Dosage: 500 MG, 2X/DAY DAY MORNING AND NIGHT AFTER MEALS
     Dates: start: 20180906
  11. M ESLON [Concomitant]
     Active Substance: MORPHINE SULFATE
     Dosage: 15 MG, 2X/DAY (EVERY 12H)
     Dates: start: 20190507
  12. CITALOPRAM [Concomitant]
     Active Substance: CITALOPRAM HYDROBROMIDE
     Dosage: 20 MG, 1X/DAY DAY AT THE SAME TIME EVERY DAY
     Dates: start: 20180216
  13. M ESLON [Concomitant]
     Active Substance: MORPHINE SULFATE
     Dosage: 15 MG, UNK (30-45 MG 2X/DAY EVERY 12H)
     Dates: start: 20190507
  14. DIMENHYDRINATE. [Concomitant]
     Active Substance: DIMENHYDRINATE
     Indication: NAUSEA
     Dosage: 50 MG, 4X/DAY EVERY 6H
     Dates: start: 20190124
  15. PREGABALIN. [Concomitant]
     Active Substance: PREGABALIN
     Dosage: 75 MG, 1X/DAY AT BEDTIME
     Dates: start: 20190701
  16. ATORVASTATINE MYLAN [Concomitant]
     Active Substance: ATORVASTATIN
     Dosage: 20 MG, 1X/DAY AT BEDTIME
     Dates: start: 201906
  17. CITALOPRAM [Concomitant]
     Active Substance: CITALOPRAM HYDROBROMIDE
     Dosage: 20 MG, 1X/DAY DAY AT THE SAME TIME EVERY DAY
     Dates: start: 20190507
  18. PROCHLORAZINE [Concomitant]
     Indication: NAUSEA
     Dosage: 10 MG, AS NEEDED
     Dates: start: 20180124
  19. DIMENHYDRINATE. [Concomitant]
     Active Substance: DIMENHYDRINATE
     Indication: VOMITING

REACTIONS (3)
  - Pulmonary embolism [Fatal]
  - Pulmonary hypertension [Unknown]
  - Neoplasm progression [Not Recovered/Not Resolved]

NARRATIVE: CASE EVENT DATE: 201907
